FAERS Safety Report 20361825 (Version 1)
Quarter: 2022Q1

REPORT INFORMATION
  Report Type: Spontaneous
  Country: US (occurrence: US)
  Receive Date: 20220121
  Receipt Date: 20220121
  Transmission Date: 20220423
  Serious: Yes (Hospitalization)
  Sender: FDA-Public Use
  Company Number: US-drreddys-LIT/USA/22/0146068

PATIENT
  Age: 65 Year
  Sex: Male

DRUGS (4)
  1. PRIMIDONE [Interacting]
     Active Substance: PRIMIDONE
     Indication: Tremor
  2. PRIMIDONE [Interacting]
     Active Substance: PRIMIDONE
     Indication: Deep vein thrombosis
     Dosage: TAPERED OVER TWO DAYS
  3. APIXABAN [Interacting]
     Active Substance: APIXABAN
     Indication: Deep vein thrombosis
  4. APIXABAN [Interacting]
     Active Substance: APIXABAN
     Indication: Tremor

REACTIONS (1)
  - Drug interaction [Recovered/Resolved]
